FAERS Safety Report 11810887 (Version 3)
Quarter: 2016Q1

REPORT INFORMATION
  Report Type: Spontaneous
  Country: US (occurrence: US)
  Receive Date: 20151208
  Receipt Date: 20160111
  Transmission Date: 20160525
  Serious: No
  Sender: FDA-Public Use
  Company Number: US-ACTELION PHARMACEUTICALS US, INC.-A-US2015-128316

PATIENT
  Age: 77 Year
  Sex: Female

DRUGS (2)
  1. OPSUMIT [Suspect]
     Active Substance: MACITENTAN
     Indication: PULMONARY ARTERIAL HYPERTENSION
     Dosage: 10 MG, QD
     Route: 048
     Dates: start: 20151109, end: 2015
  2. RIOCIGUAT [Concomitant]
     Active Substance: RIOCIGUAT
     Dosage: UNK

REACTIONS (3)
  - Negative thoughts [Unknown]
  - Fall [Unknown]
  - Dizziness [Unknown]
